FAERS Safety Report 8346354-5 (Version None)
Quarter: 2012Q2

REPORT INFORMATION
  Report Type: 
  Country: None (occurrence: None)
  Receive Date: 20120509
  Receipt Date: 20120504
  Transmission Date: 20120825
  Serious: Yes (Hospitalization, Other)
  Sender: FDA-Public Use
  Company Number: US-PFIZER INC-2012079527

PATIENT
  Sex: Female
  Weight: 91.156 kg

DRUGS (4)
  1. METFORMIN [Concomitant]
     Indication: DIABETES MELLITUS
     Dosage: 1000 MG, DAILY
  2. LYRICA [Suspect]
     Indication: NEUROPATHY PERIPHERAL
     Dosage: 75 MG, 2X/DAY
     Route: 048
     Dates: start: 20111201, end: 20120329
  3. METOPROLOL [Concomitant]
     Indication: HYPERTENSION
     Dosage: 50 MG, 2X/DAY
  4. LANTUS [Concomitant]
     Indication: DIABETES MELLITUS
     Dosage: 25 IU, DAILY

REACTIONS (4)
  - HYPOAESTHESIA [None]
  - PNEUMONIA PRIMARY ATYPICAL [None]
  - ATRIOVENTRICULAR BLOCK [None]
  - CHEST PAIN [None]
